FAERS Safety Report 10257779 (Version 2)
Quarter: 2014Q3

REPORT INFORMATION
  Report Type: Spontaneous
  Country: MY (occurrence: None)
  Receive Date: 20140620
  Receipt Date: 20140716
  Transmission Date: 20150326
  Serious: Yes (Hospitalization)
  Sender: FDA-Public Use
  Company Number: FK201402378

PATIENT
  Age: 35 Year
  Sex: Female

DRUGS (3)
  1. METRONIDAZOLE. [Suspect]
     Active Substance: METRONIDAZOLE
     Indication: PELVIC INFLAMMATORY DISEASE
  2. AMPICILLIN (AMPICILLIN) [Concomitant]
     Active Substance: AMPICILLIN
  3. CEFUROXIME. [Suspect]
     Active Substance: CEFUROXIME
     Indication: PELVIC INFLAMMATORY DISEASE

REACTIONS (6)
  - Screaming [None]
  - Hallucination [None]
  - Abnormal behaviour [None]
  - Delusion [None]
  - Irritability [None]
  - Psychotic disorder [None]
